FAERS Safety Report 4853869-0 (Version None)
Quarter: 2005Q4

REPORT INFORMATION
  Report Type: 
  Country: None (occurrence: None)
  Receive Date: 20051213
  Receipt Date: 20051202
  Transmission Date: 20060501
  Serious: Yes (Hospitalization)
  Sender: FDA-Public Use
  Company Number: KII-2005-0020078

PATIENT
  Age: 50 Year
  Sex: Female

DRUGS (5)
  1. OXYCODONE HCL [Suspect]
     Dosage: ORAL
     Route: 048
  2. CYCLOBENZAPRINE (CYCLOBENZAPRINE) [Suspect]
     Dosage: ORAL
     Route: 048
  3. SSRI [Concomitant]
  4. ANTIEPILEPTICS [Concomitant]
  5. METHYLPHENIDATE HCL [Concomitant]

REACTIONS (2)
  - SOMNOLENCE [None]
  - WRONG DRUG ADMINISTERED [None]
